FAERS Safety Report 15940868 (Version 2)
Quarter: 2019Q2

REPORT INFORMATION
  Report Type: Spontaneous
  Country: US (occurrence: US)
  Receive Date: 20190208
  Receipt Date: 20190611
  Transmission Date: 20190711
  Serious: Yes (Other)
  Sender: FDA-Public Use
  Company Number: US-SA-2019SA035298

PATIENT
  Age: 54 Year
  Sex: Female
  Weight: 102 kg

DRUGS (7)
  1. METOPROLOL. [Concomitant]
     Active Substance: METOPROLOL
     Dosage: UNK
     Dates: start: 201202
  2. LISINOPRIL. [Concomitant]
     Active Substance: LISINOPRIL
     Dosage: UNK
     Dates: start: 201202
  3. HYDROCODONE [Concomitant]
     Active Substance: HYDROCODONE
     Dosage: UNK
     Dates: start: 2011
  4. PARAPLATIN [Concomitant]
     Active Substance: CARBOPLATIN
  5. ASPRIN [Concomitant]
     Active Substance: ASPIRIN
     Dosage: UNK UNK, UNK
     Dates: start: 2011
  6. TAXOTERE [Suspect]
     Active Substance: DOCETAXEL
     Indication: BREAST CANCER FEMALE
     Dosage: 176 MG, Q3W
     Route: 042
     Dates: start: 20140516, end: 20140516
  7. TAXOTERE [Suspect]
     Active Substance: DOCETAXEL
     Dosage: 176 MG, Q3W
     Route: 042
     Dates: start: 20140721, end: 20140721

REACTIONS (2)
  - Psychological trauma [Unknown]
  - Alopecia [Not Recovered/Not Resolved]

NARRATIVE: CASE EVENT DATE: 201406
